FAERS Safety Report 16035690 (Version 2)
Quarter: 2019Q1

REPORT INFORMATION
  Report Type: Spontaneous
  Country: JP (occurrence: JP)
  Receive Date: 20190305
  Receipt Date: 20190321
  Transmission Date: 20190418
  Serious: No
  Sender: FDA-Public Use
  Company Number: JP-BAYER-2019-045296

PATIENT
  Age: 88 Year
  Sex: Female

DRUGS (7)
  1. BAYASPIRIN 100 MG [Suspect]
     Active Substance: ASPIRIN
     Indication: CEREBROVASCULAR ACCIDENT PROPHYLAXIS
     Dosage: 50 MG, QD
     Route: 048
     Dates: end: 20190305
  2. BAYASPIRIN 100 MG [Suspect]
     Active Substance: ASPIRIN
     Indication: CEREBROVASCULAR ACCIDENT PROPHYLAXIS
     Dosage: 100, QD
     Route: 048
  3. TRAMCET [Concomitant]
     Active Substance: ACETAMINOPHEN\TRAMADOL
  4. NICORANDIL [Concomitant]
     Active Substance: NICORANDIL
  5. BROTIZOLAM [Concomitant]
     Active Substance: BROTIZOLAM
  6. EPADEL [EICOSAPENTAENOIC ACID] [Concomitant]
  7. LOXONIN [Concomitant]
     Active Substance: LOXOPROFEN SODIUM

REACTIONS (2)
  - Incorrect dose administered [None]
  - Wrong technique in product usage process [None]
